FAERS Safety Report 8541551-8 (Version None)
Quarter: 2012Q3

REPORT INFORMATION
  Report Type: 
  Country: None (occurrence: None)
  Receive Date: 20120726
  Receipt Date: 20120509
  Transmission Date: 20120928
  Serious: No
  Sender: FDA-Public Use
  Company Number: US-MUTUAL PHARMACEUTICAL COMPANY, INC.-CLCY20120079

PATIENT
  Sex: Male
  Weight: 78.542 kg

DRUGS (5)
  1. STALEVO 100 [Concomitant]
     Indication: PARKINSON'S DISEASE
     Route: 048
  2. ZOLOFT [Concomitant]
     Indication: DEPRESSION
     Route: 048
     Dates: start: 20120201
  3. ALLOPURINOL [Concomitant]
     Indication: GOUT
     Route: 048
  4. COLCRYS [Suspect]
     Indication: GOUT
     Route: 048
     Dates: start: 20120502
  5. KLONIPINE [Concomitant]
     Indication: ANXIETY
     Route: 048
     Dates: start: 20120201

REACTIONS (3)
  - ERUCTATION [None]
  - CHEST PAIN [None]
  - DYSPEPSIA [None]
